FAERS Safety Report 10719731 (Version 1)
Quarter: 2015Q1

REPORT INFORMATION
  Report Type: Spontaneous
  Country: US (occurrence: US)
  Receive Date: 20150119
  Receipt Date: 20150119
  Transmission Date: 20150721
  Serious: No
  Sender: FDA-Public Use
  Company Number: US-BIOGENIDEC-2015BI004762

PATIENT
  Sex: Female

DRUGS (1)
  1. TYSABRI [Suspect]
     Active Substance: NATALIZUMAB
     Indication: MULTIPLE SCLEROSIS
     Route: 042
     Dates: start: 20140915

REACTIONS (8)
  - Leukoplakia oral [Not Recovered/Not Resolved]
  - Tooth disorder [Not Recovered/Not Resolved]
  - Dry mouth [Not Recovered/Not Resolved]
  - Toothache [Recovered/Resolved]
  - Mouth injury [Recovered/Resolved]
  - Dental caries [Recovered/Resolved]
  - Gingival bleeding [Recovered/Resolved]
  - Tongue injury [Recovered/Resolved]

NARRATIVE: CASE EVENT DATE: 2014
